FAERS Safety Report 5259311-2 (Version None)
Quarter: 2007Q1

REPORT INFORMATION
  Report Type: 
  Country: None (occurrence: None)
  Receive Date: 20070308
  Receipt Date: 20070302
  Transmission Date: 20070707
  Serious: Yes (Hospitalization)
  Sender: FDA-Public Use
  Company Number: US-MERCK-0701USA01089

PATIENT
  Age: 16 Year
  Sex: Female

DRUGS (2)
  1. SINGULAIR [Suspect]
     Indication: ASTHMA
     Route: 048
     Dates: start: 20060501, end: 20061001
  2. [THERAPY UNSPECIFIED] [Concomitant]
     Route: 065

REACTIONS (6)
  - DYSPEPSIA [None]
  - HEPATIC CIRRHOSIS [None]
  - HEPATIC ENZYME INCREASED [None]
  - HEPATITIS ACUTE [None]
  - OESOPHAGEAL PAIN [None]
  - STOMACH DISCOMFORT [None]
